FAERS Safety Report 6284417-9 (Version None)
Quarter: 2009Q3

REPORT INFORMATION
  Report Type: 
  Country: None (occurrence: None)
  Receive Date: 20090727
  Receipt Date: 20090715
  Transmission Date: 20100115
  Serious: Yes (Other)
  Sender: FDA-Public Use
  Company Number: US-ROCHE-644394

PATIENT
  Sex: Female

DRUGS (2)
  1. PEGASYS [Suspect]
     Indication: HEPATITIS C
     Dosage: PATIENT HAD COMPLETED 17 WEEKS, FORM: PREFILLED SYRINGE
     Route: 065
     Dates: start: 20090219, end: 20090702
  2. RIBAVIRIN [Suspect]
     Indication: HEPATITIS C
     Dosage: PATIENT HAD COMPLETED 17 WEEKS
     Route: 065
     Dates: start: 20090219

REACTIONS (3)
  - BLOOD CALCIUM ABNORMAL [None]
  - LOSS OF CONSCIOUSNESS [None]
  - RED BLOOD CELL COUNT DECREASED [None]
